FAERS Safety Report 4713502-5 (Version None)
Quarter: 2005Q3

REPORT INFORMATION
  Report Type: 
  Country: None (occurrence: None)
  Receive Date: 20050707
  Receipt Date: 20050701
  Transmission Date: 20060218
  Serious: Yes (Other)
  Sender: FDA-Public Use
  Company Number: 2250051-2005-00283

PATIENT
  Sex: Female

DRUGS (1)
  1. RHOGAM [Suspect]

REACTIONS (2)
  - HEPATITIS [None]
  - PHARMACEUTICAL PRODUCT COMPLAINT [None]
